FAERS Safety Report 9798512 (Version 1)
Quarter: 2014Q1

REPORT INFORMATION
  Report Type: Spontaneous
  Country: US (occurrence: US)
  Receive Date: 20140106
  Receipt Date: 20140106
  Transmission Date: 20141002
  Serious: No
  Sender: FDA-Public Use
  Company Number: US-BAYER-2014-001381

PATIENT
  Sex: Male

DRUGS (3)
  1. ALEVE CAPLET [Suspect]
  2. BAYER GENUINE ASPIRIN ORIGINAL STRENGTH [Suspect]
  3. NAPROXEN [Concomitant]
     Dosage: 2 DOSE

REACTIONS (1)
  - Drug ineffective [None]
